FAERS Safety Report 12434269 (Version 2)
Quarter: 2016Q3

REPORT INFORMATION
  Report Type: Spontaneous
  Country: US (occurrence: US)
  Receive Date: 20160603
  Receipt Date: 20160711
  Transmission Date: 20161109
  Serious: Yes (Other)
  Sender: FDA-Public Use
  Company Number: US-009507513-1606USA000879

PATIENT
  Age: 10 Day
  Sex: Female
  Weight: 2 kg

DRUGS (7)
  1. SODIUM CHLORIDE. [Concomitant]
     Active Substance: SODIUM CHLORIDE
     Dosage: 180 ML, ONCE
  2. FENTANYL. [Concomitant]
     Active Substance: FENTANYL
     Indication: ANAESTHESIA PROCEDURE
     Dosage: 55 MICROGRAM (27.5 MICROGRAM/KG), ONCE
  3. D10 1/4 NORMAL SALINE [Concomitant]
     Dosage: 20 ML, ONCE
  4. ZEMURON [Suspect]
     Active Substance: ROCURONIUM BROMIDE
     Indication: ANAESTHESIA PROCEDURE
     Dosage: 20 MG (10 MG/KG) IN 4 DIVIDED DOSES
  5. SEVOFLURANE. [Concomitant]
     Active Substance: SEVOFLURANE
     Indication: ANAESTHESIA PROCEDURE
     Dosage: UNK
  6. ALBUMIN [Concomitant]
     Active Substance: ALBUMIN HUMAN
     Dosage: 36 ML, ONCE
  7. GLYCOPYRROLATE. [Concomitant]
     Active Substance: GLYCOPYRROLATE
     Dosage: 0.1 MG, ONCE

REACTIONS (3)
  - Prescribed overdose [Unknown]
  - Neuromuscular block prolonged [Recovering/Resolving]
  - Pupil fixed [Recovering/Resolving]
